FAERS Safety Report 13784869 (Version 1)
Quarter: 2017Q3

REPORT INFORMATION
  Report Type: Spontaneous
  Country: US (occurrence: US)
  Receive Date: 20170724
  Receipt Date: 20170724
  Transmission Date: 20171127
  Serious: Yes (Hospitalization)
  Sender: FDA-Public Use
  Company Number: None

PATIENT
  Age: 64 Year
  Sex: Male

DRUGS (16)
  1. INTRON A [Suspect]
     Active Substance: INTERFERON ALFA-2B
     Indication: MYCOSIS FUNGOIDES
     Dosage: DOSE - 1.25 ML OR 7.5MU?FREQUENCY - EVERY MON WED + FRI?ROUTE - INJECTION
     Dates: start: 20170424
  2. INTRON A [Suspect]
     Active Substance: INTERFERON ALFA-2B
     Indication: MYCOSIS FUNGOIDES
     Dosage: DOSE - 1.25 ML OR 7.5MU?FREQUENCY - EVERY MON WED + FRI?ROUTE - INJECTION
     Dates: start: 20170424
  3. ASPIRIN. [Concomitant]
     Active Substance: ASPIRIN
  4. FENOFIBRATE. [Concomitant]
     Active Substance: FENOFIBRATE
  5. PROCHLORPER [Concomitant]
  6. GLIPIZIDE. [Concomitant]
     Active Substance: GLIPIZIDE
  7. OMEPRAZOLE. [Concomitant]
     Active Substance: OMEPRAZOLE
  8. CLOTRIM/BETA [Concomitant]
  9. NUMOISYN [Concomitant]
  10. LEVOCETIRIZI [Concomitant]
  11. VASCEPA [Concomitant]
     Active Substance: ICOSAPENT ETHYL
  12. LEVOTHYROXIN [Concomitant]
     Active Substance: LEVOTHYROXINE
  13. METFORMIN [Concomitant]
     Active Substance: METFORMIN HYDROCHLORIDE
  14. VITAMIN D [Concomitant]
     Active Substance: CHOLECALCIFEROL
  15. GABAPENTIN. [Concomitant]
     Active Substance: GABAPENTIN
  16. MOMETASONE [Concomitant]
     Active Substance: MOMETASONE

REACTIONS (2)
  - Hospitalisation [None]
  - Therapy cessation [None]

NARRATIVE: CASE EVENT DATE: 20170719
